FAERS Safety Report 13447817 (Version 3)
Quarter: 2017Q2

REPORT INFORMATION
  Report Type: Spontaneous
  Country: PT (occurrence: PT)
  Receive Date: 20170417
  Receipt Date: 20170509
  Transmission Date: 20170830
  Serious: Yes (Life-Threatening)
  Sender: FDA-Public Use
  Company Number: PT-SA-2017SA066583

PATIENT
  Age: 82 Year
  Sex: Female
  Weight: 61 kg

DRUGS (7)
  1. LOVENOX [Suspect]
     Active Substance: ENOXAPARIN SODIUM
     Indication: ACUTE CORONARY SYNDROME
     Dosage: 80MG/0,8ML
     Route: 058
     Dates: start: 20170409
  2. IRBESARTAN. [Concomitant]
     Active Substance: IRBESARTAN
     Indication: ACUTE CORONARY SYNDROME
     Route: 048
     Dates: start: 20170417
  3. CLOPIDOGREL [Concomitant]
     Active Substance: CLOPIDOGREL BISULFATE
     Indication: ACUTE CORONARY SYNDROME
     Route: 048
     Dates: start: 20170409, end: 20170412
  4. CARVEDILOL. [Concomitant]
     Active Substance: CARVEDILOL
     Indication: ACUTE CORONARY SYNDROME
     Route: 048
     Dates: start: 20170409
  5. ACETYLSALICYLIC ACID [Concomitant]
     Active Substance: ASPIRIN
     Indication: ACUTE CORONARY SYNDROME
     Route: 048
  6. CAPTOPRIL. [Concomitant]
     Active Substance: CAPTOPRIL
     Indication: ACUTE CORONARY SYNDROME
     Route: 048
     Dates: start: 20170409, end: 20170417
  7. PRAVASTATIN. [Concomitant]
     Active Substance: PRAVASTATIN
     Indication: ACUTE CORONARY SYNDROME
     Route: 048
     Dates: start: 20170409

REACTIONS (4)
  - Device related thrombosis [Recovered/Resolved]
  - Electrocardiogram ST segment elevation [Recovered/Resolved]
  - Off label use [Unknown]
  - Chest pain [Recovered/Resolved]

NARRATIVE: CASE EVENT DATE: 20170412
